FAERS Safety Report 5020955-4 (Version None)
Quarter: 2006Q2

REPORT INFORMATION
  Report Type: 
  Country: None (occurrence: None)
  Receive Date: 20060608
  Receipt Date: 20060531
  Transmission Date: 20061013
  Serious: Yes (Other)
  Sender: FDA-Public Use
  Company Number: PHBS2006BE08058

PATIENT
  Age: 67 Year
  Sex: Male

DRUGS (2)
  1. DIOVAN [Suspect]
     Indication: HYPERTENSION
     Route: 048
     Dates: start: 20020101, end: 20060516
  2. ASCAL [Concomitant]
     Dosage: 100 MG, UNK

REACTIONS (7)
  - BLOOD PRESSURE INCREASED [None]
  - CARDIAC FAILURE [None]
  - COUGH [None]
  - DEPRESSED MOOD [None]
  - DYSPNOEA [None]
  - EXTRASYSTOLES [None]
  - INFLUENZA LIKE ILLNESS [None]
